FAERS Safety Report 12847782 (Version 1)
Quarter: 2016Q4

REPORT INFORMATION
  Report Type: Spontaneous
  Country: US (occurrence: US)
  Receive Date: 20161014
  Receipt Date: 20161014
  Transmission Date: 20170207
  Serious: No
  Sender: FDA-Public Use
  Company Number: US-JNJFOC-20160826455

PATIENT
  Age: 90 Year
  Sex: Female
  Weight: 53.52 kg

DRUGS (1)
  1. TYLENOL EXTRA STRENGTH [Suspect]
     Active Substance: ACETAMINOPHEN
     Indication: BACK PAIN
     Dosage: 1 CAPLET EVERY 6 HOURS
     Route: 048
     Dates: start: 20160828

REACTIONS (3)
  - Intentional underdose [Unknown]
  - Intentional product use issue [Unknown]
  - Product label issue [Unknown]
